FAERS Safety Report 25957362 (Version 1)
Quarter: 2025Q4

REPORT INFORMATION
  Report Type: Spontaneous
  Country: US (occurrence: US)
  Receive Date: 20251024
  Receipt Date: 20251024
  Transmission Date: 20260118
  Serious: No
  Sender: SEPTODONT
  Company Number: US-SEPTODONT-2025019512

PATIENT
  Age: 53 Year
  Sex: Male

DRUGS (2)
  1. ARTICAINE HYDROCHLORIDE\EPINEPHRINE BITARTRATE [Suspect]
     Active Substance: ARTICAINE HYDROCHLORIDE\EPINEPHRINE BITARTRATE
     Indication: Dental local anaesthesia
     Dosage: 1 CARP.
     Route: 065
     Dates: start: 20250113, end: 20250113
  2. METFORMIN [Concomitant]
     Active Substance: METFORMIN HYDROCHLORIDE
     Indication: Diabetes mellitus

REACTIONS (4)
  - Scratch [Recovering/Resolving]
  - Hypoaesthesia [Recovering/Resolving]
  - Pruritus [Recovering/Resolving]
  - Lip injury [Unknown]

NARRATIVE: CASE EVENT DATE: 20250101
